FAERS Safety Report 4545940-8 (Version None)
Quarter: 2005Q1

REPORT INFORMATION
  Report Type: 
  Country: None (occurrence: None)
  Receive Date: 20050103
  Receipt Date: 20041222
  Transmission Date: 20050727
  Serious: Yes (Hospitalization, Other)
  Sender: FDA-Public Use
  Company Number: 2004118209

PATIENT
  Sex: Female

DRUGS (1)
  1. ZYVOX [Suspect]
     Indication: CYSTITIS

REACTIONS (3)
  - BLISTER [None]
  - OROPHARYNGEAL SWELLING [None]
  - TONGUE OEDEMA [None]
